FAERS Safety Report 5392034-8 (Version None)
Quarter: 2007Q3

REPORT INFORMATION
  Report Type: 
  Country: None (occurrence: None)
  Receive Date: 20070718
  Receipt Date: 20070718
  Transmission Date: 20080115
  Serious: Yes (Hospitalization)
  Sender: FDA-Public Use
  Company Number: None

PATIENT
  Sex: Female
  Weight: 72.1 kg

DRUGS (1)
  1. FLUOROURACIL [Suspect]
     Dosage: 3610 MG

REACTIONS (17)
  - ABDOMINAL DISCOMFORT [None]
  - ABDOMINAL DISTENSION [None]
  - ABDOMINAL PAIN LOWER [None]
  - DIARRHOEA [None]
  - EXCORIATION [None]
  - FEBRILE NEUTROPENIA [None]
  - FLUID RETENTION [None]
  - GASTROINTESTINAL OEDEMA [None]
  - HYPOTENSION [None]
  - MUCOSAL INFLAMMATION [None]
  - NAUSEA [None]
  - RASH ERYTHEMATOUS [None]
  - RASH PRURITIC [None]
  - SMALL INTESTINAL OBSTRUCTION [None]
  - TACHYCARDIA [None]
  - VOMITING [None]
  - WHITE BLOOD CELL COUNT DECREASED [None]
